FAERS Safety Report 15900693 (Version 2)
Quarter: 2019Q2

REPORT INFORMATION
  Report Type: Spontaneous
  Country: US (occurrence: US)
  Receive Date: 20190201
  Receipt Date: 20190401
  Transmission Date: 20190711
  Serious: Yes (Other)
  Sender: FDA-Public Use
  Company Number: US-JNJFOC-20190129136

PATIENT
  Age: 0 Year
  Sex: Male
  Weight: 3.18 kg

DRUGS (1)
  1. DURAGESIC [Suspect]
     Active Substance: FENTANYL
     Indication: PAIN
     Route: 064
     Dates: start: 201810

REACTIONS (4)
  - Intensive care [Unknown]
  - Foetal exposure during pregnancy [Recovered/Resolved]
  - Poor feeding infant [Recovered/Resolved]
  - Tremor [Unknown]

NARRATIVE: CASE EVENT DATE: 201901
